FAERS Safety Report 8183457 (Version 3)
Quarter: 2013Q4

REPORT INFORMATION
  Report Type: Spontaneous
  Country: US (occurrence: US)
  Receive Date: 20111017
  Receipt Date: 20131029
  Transmission Date: 20140711
  Serious: No
  Sender: FDA-Public Use
  Company Number: US-PURDUE-USA-2011-0076127

PATIENT
  Age: 59 Year
  Sex: Male

DRUGS (1)
  1. OXYCONTIN (NDA 22-272) [Suspect]
     Indication: PAIN
     Dosage: 20 MG, BID
     Dates: start: 201109

REACTIONS (2)
  - Vomiting [Recovered/Resolved]
  - Inadequate analgesia [Unknown]
